FAERS Safety Report 7963239-4 (Version None)
Quarter: 2011Q4

REPORT INFORMATION
  Report Type: 
  Country: None (occurrence: None)
  Receive Date: 20111208
  Receipt Date: 20111205
  Transmission Date: 20120403
  Serious: No
  Sender: FDA-Public Use
  Company Number: US-BIOGENIDEC-2010BI037340

PATIENT
  Sex: Female

DRUGS (1)
  1. TYSABRI [Suspect]
     Indication: MULTIPLE SCLEROSIS
     Route: 042
     Dates: start: 20090119

REACTIONS (6)
  - NAUSEA [None]
  - NASOPHARYNGITIS [None]
  - FATIGUE [None]
  - INFUSION SITE PAIN [None]
  - POOR VENOUS ACCESS [None]
  - GAIT DISTURBANCE [None]
